FAERS Safety Report 9355801 (Version 10)
Quarter: 2014Q4

REPORT INFORMATION
  Report Type: Report from Study
  Country: DE (occurrence: DE)
  Receive Date: 20130619
  Receipt Date: 20141009
  Transmission Date: 20150529
  Serious: Yes (Hospitalization)
  Sender: FDA-Public Use
  Company Number: CHPA2012DE022991

PATIENT
  Age: 22 Year
  Sex: Male
  Weight: 85.7 kg

DRUGS (66)
  1. FENISTIL [Suspect]
     Active Substance: DIMETHINDENE
     Indication: PREMEDICATION
     Dosage: 4 MG, QD
     Route: 042
     Dates: start: 20120821
  2. FENISTIL [Suspect]
     Active Substance: DIMETHINDENE
     Dosage: 4 MG, UNK
     Route: 042
     Dates: start: 20140205
  3. URBASON//METHYLPREDNISOLONE SODIUM SUCCINATE [Suspect]
     Active Substance: METHYLPREDNISOLONE
     Dosage: UNK, UNK
     Route: 065
     Dates: start: 20130725
  4. PARACETAMOL [Concomitant]
     Active Substance: ACETAMINOPHEN
     Dosage: 1000 MG, QD
     Route: 042
     Dates: start: 20120821
  5. BACLOFEN. [Concomitant]
     Active Substance: BACLOFEN
     Dosage: 25 MG, UNK
     Dates: start: 20140205
  6. FENISTIL [Suspect]
     Active Substance: DIMETHINDENE
     Dosage: 4 MG, UNK
     Route: 042
     Dates: start: 20130813
  7. RANITIC [Suspect]
     Active Substance: RANITIDINE HYDROCHLORIDE
     Dosage: 50 MG, UNK
     Dates: start: 20130725
  8. URBASON//METHYLPREDNISOLONE SODIUM SUCCINATE [Suspect]
     Active Substance: METHYLPREDNISOLONE
     Dosage: 100 MG, UNK
     Route: 065
     Dates: start: 20140205
  9. L-THYROXIN [Concomitant]
     Active Substance: LEVOTHYROXINE SODIUM
     Dosage: 100 UG, QD
     Route: 048
     Dates: start: 20130415
  10. FAMPRIDINE [Concomitant]
     Active Substance: DALFAMPRIDINE
     Dosage: 20 MG, QD
     Route: 048
     Dates: start: 20130624
  11. PREDNISOLONE HEMISUCCINATE [Concomitant]
     Active Substance: PREDNISOLONE HEMISUCCINATE
     Dosage: 100 MG, UNK
     Dates: start: 20130212
  12. CALCIUM [Concomitant]
     Active Substance: CALCIUM
  13. FENISTIL [Suspect]
     Active Substance: DIMETHINDENE
     Dosage: 4 MG, UNK
     Dates: start: 20130725
  14. FENISTIL [Suspect]
     Active Substance: DIMETHINDENE
     Dosage: 4 MG, UNK
     Route: 042
     Dates: start: 20140625
  15. PLACEBO [Suspect]
     Active Substance: UNSPECIFIED INGREDIENT
     Dosage: UNK, ONCE/SINGLE
     Route: 042
     Dates: start: 20140205
  16. URBASON//METHYLPREDNISOLONE SODIUM SUCCINATE [Suspect]
     Active Substance: METHYLPREDNISOLONE
     Dosage: 2 G, UNK
     Route: 065
     Dates: start: 20120530, end: 20120604
  17. URBASON//METHYLPREDNISOLONE SODIUM SUCCINATE [Suspect]
     Active Substance: METHYLPREDNISOLONE
     Dosage: 100 MG, UNK
     Route: 065
     Dates: start: 20140122
  18. PARACETAMOL [Concomitant]
     Active Substance: ACETAMINOPHEN
     Dosage: 1000 MG, QD
     Route: 042
     Dates: start: 20130226
  19. FENISTIL [Suspect]
     Active Substance: DIMETHINDENE
     Dosage: 4 MG, UNK
     Route: 042
     Dates: start: 20130212
  20. RANITIC [Suspect]
     Active Substance: RANITIDINE HYDROCHLORIDE
     Indication: PREMEDICATION
     Dosage: 50 MG, QD
     Route: 042
     Dates: start: 20120821
  21. RANITIC [Suspect]
     Active Substance: RANITIDINE HYDROCHLORIDE
     Dosage: 50 MG, UNK
     Route: 042
     Dates: start: 20130226
  22. RANITIC [Suspect]
     Active Substance: RANITIDINE HYDROCHLORIDE
     Dosage: 50 MG, UNK
     Route: 042
     Dates: start: 20140205
  23. RANITIC [Suspect]
     Active Substance: RANITIDINE HYDROCHLORIDE
     Dosage: 50 MG, UNK
     Route: 042
     Dates: start: 20140710
  24. URBASON//METHYLPREDNISOLONE SODIUM SUCCINATE [Suspect]
     Active Substance: METHYLPREDNISOLONE
     Dosage: 100 MG, UNK
     Route: 042
     Dates: start: 20121219, end: 20121220
  25. URBASON//METHYLPREDNISOLONE SODIUM SUCCINATE [Suspect]
     Active Substance: METHYLPREDNISOLONE
     Dosage: 100 MG, UNK
     Route: 065
     Dates: start: 20130813
  26. PARACETAMOL [Concomitant]
     Active Substance: ACETAMINOPHEN
     Dosage: 1000 MG, UNK
     Route: 042
     Dates: start: 20140205
  27. PANTOPRAZOLE [Concomitant]
     Active Substance: PANTOPRAZOLE SODIUM
     Indication: MULTIPLE SCLEROSIS
     Dosage: 40 MG, QD
     Dates: start: 20121214, end: 20121220
  28. BUPROPION HYDROCHLORIDE. [Concomitant]
     Active Substance: BUPROPION HYDROCHLORIDE
     Dosage: 150 MG, UNK
     Dates: start: 20130729
  29. FENISTIL [Suspect]
     Active Substance: DIMETHINDENE
     Dosage: 4 MG, UNK
     Route: 042
     Dates: start: 20140710
  30. RANITIC [Suspect]
     Active Substance: RANITIDINE HYDROCHLORIDE
     Dosage: 50 MG, UNK
     Route: 042
     Dates: start: 20130813
  31. PLACEBO [Suspect]
     Active Substance: UNSPECIFIED INGREDIENT
     Dosage: UNK, ONCE/SINGLE
     Route: 042
     Dates: start: 20130813
  32. URBASON//METHYLPREDNISOLONE SODIUM SUCCINATE [Suspect]
     Active Substance: METHYLPREDNISOLONE
     Dosage: 2 G, UNK
     Route: 042
     Dates: start: 20121214, end: 20121218
  33. L-THYROXIN [Concomitant]
     Active Substance: LEVOTHYROXINE SODIUM
     Indication: AUTOIMMUNE THYROIDITIS
     Dosage: 100 UG, QD
     Route: 048
     Dates: start: 201001, end: 20130414
  34. PARACETAMOL [Concomitant]
     Active Substance: ACETAMINOPHEN
     Dosage: 1000 MG, QD
     Route: 042
     Dates: start: 20130212
  35. PARACETAMOL [Concomitant]
     Active Substance: ACETAMINOPHEN
     Dosage: 1000 MG, UNK
     Route: 042
     Dates: start: 20130813
  36. VITAMIN D3 [Concomitant]
     Active Substance: CHOLECALCIFEROL
     Indication: PROPHYLAXIS
     Dosage: 1200 MG, QD
     Dates: start: 20121214, end: 20121220
  37. OCRELIZUMAB [Concomitant]
     Active Substance: OCRELIZUMAB
     Dosage: UNK, UNK
     Dates: start: 20130725
  38. PREDNISOLUT [Concomitant]
     Active Substance: PREDNISOLONE
     Dosage: 100 MG, UNK
     Dates: start: 20130212
  39. PREDNISOLUT [Concomitant]
     Active Substance: PREDNISOLONE
     Dosage: 100 MG, UNK
     Dates: start: 20130813
  40. FENISTIL [Suspect]
     Active Substance: DIMETHINDENE
     Dosage: 4 MG, UNK
     Route: 042
     Dates: start: 20140122
  41. RANITIC [Suspect]
     Active Substance: RANITIDINE HYDROCHLORIDE
     Dosage: 50 MG, UNK
     Route: 042
     Dates: start: 20130212
  42. URBASON//METHYLPREDNISOLONE SODIUM SUCCINATE [Suspect]
     Active Substance: METHYLPREDNISOLONE
     Dosage: 1 G, UNK
     Route: 042
     Dates: start: 201106, end: 201106
  43. PARACETAMOL [Concomitant]
     Active Substance: ACETAMINOPHEN
     Dosage: 1000 MG, UNK
     Dates: start: 20130725
  44. PARACETAMOL [Concomitant]
     Active Substance: ACETAMINOPHEN
     Dosage: 1000 MG, UNK
     Route: 042
     Dates: start: 20140625
  45. PARACETAMOL [Concomitant]
     Active Substance: ACETAMINOPHEN
     Dosage: 1000 MG, UNK
     Route: 042
     Dates: start: 20140710
  46. LIORESAL [Concomitant]
     Active Substance: BACLOFEN
     Indication: MULTIPLE SCLEROSIS
     Dosage: 5 MG, QD
     Dates: start: 20121122, end: 20130415
  47. BACLOFEN. [Concomitant]
     Active Substance: BACLOFEN
     Indication: MUSCLE SPASMS
     Dosage: 30 MG, UNK
     Dates: start: 20130510, end: 20140204
  48. BACLOFEN. [Concomitant]
     Active Substance: BACLOFEN
     Dosage: 50 MG, UNK
     Dates: start: 20140205
  49. PREDNISOLUT [Concomitant]
     Active Substance: PREDNISOLONE
     Dosage: 100 MG, UNK
     Dates: start: 20130725
  50. PREDNISOLUT [Concomitant]
     Active Substance: PREDNISOLONE
     Dosage: 100 MG, UNK
     Dates: start: 20140122
  51. RANITIC [Suspect]
     Active Substance: RANITIDINE HYDROCHLORIDE
     Dosage: 50 MG, UNK
     Route: 042
     Dates: start: 20140122
  52. RANITIC [Suspect]
     Active Substance: RANITIDINE HYDROCHLORIDE
     Dosage: 50 MG, UNK
     Route: 042
     Dates: start: 20140625
  53. PLACEBO [Suspect]
     Active Substance: UNSPECIFIED INGREDIENT
     Indication: MULTIPLE SCLEROSIS
     Dosage: UNK UNK, ONCE/SINGLE
     Route: 042
     Dates: start: 20120821
  54. PLACEBO [Suspect]
     Active Substance: UNSPECIFIED INGREDIENT
     Dosage: UNK, ONCE/SINGLE
     Route: 042
     Dates: start: 20130725, end: 20130725
  55. URBASON//METHYLPREDNISOLONE SODIUM SUCCINATE [Suspect]
     Active Substance: METHYLPREDNISOLONE
     Indication: MULTIPLE SCLEROSIS
     Dosage: 100 MG, QD
     Route: 042
     Dates: start: 20120821
  56. FAMPRIDINE [Concomitant]
     Active Substance: DALFAMPRIDINE
     Indication: MULTIPLE SCLEROSIS
     Dosage: 20 MG, QD
     Route: 048
     Dates: start: 20120627, end: 20120903
  57. PREDNISOLONE HEMISUCCINATE [Concomitant]
     Active Substance: PREDNISOLONE HEMISUCCINATE
     Dosage: 100 MG, UNK
     Dates: start: 20130226
  58. ASPIRIN. [Concomitant]
     Active Substance: ASPIRIN
     Indication: HEADACHE
     Dosage: 500 MG, UNK
     Dates: start: 20130310, end: 20130313
  59. OCRELIZUMAB [Concomitant]
     Active Substance: OCRELIZUMAB
     Dosage: UNK, UNK
     Dates: start: 20130226
  60. PREDNISOLUT [Concomitant]
     Active Substance: PREDNISOLONE
     Dosage: 100 MG, UNK
     Dates: start: 20130226
  61. PREDNISOLUT [Concomitant]
     Active Substance: PREDNISOLONE
     Dosage: 100 MG, UNK
     Dates: start: 20140205
  62. FENISTIL [Suspect]
     Active Substance: DIMETHINDENE
     Dosage: 4 MG, UNK
     Route: 042
     Dates: start: 20130226
  63. PLACEBO [Suspect]
     Active Substance: UNSPECIFIED INGREDIENT
     Dosage: UNK, ONCE/SINGLE
     Route: 042
     Dates: start: 20140122
  64. PARACETAMOL [Concomitant]
     Active Substance: ACETAMINOPHEN
     Dosage: 1000 MG, UNK
     Route: 042
     Dates: start: 20140122
  65. OCRELIZUMAB [Concomitant]
     Active Substance: OCRELIZUMAB
     Dosage: UNK, UNK
     Dates: start: 20130212
  66. CETIRIZINE HYDROCHLORIDE. [Concomitant]
     Active Substance: CETIRIZINE HYDROCHLORIDE
     Indication: RHINITIS ALLERGIC
     Dosage: 10 MG, UNK
     Dates: start: 20140523

REACTIONS (1)
  - Tachycardia [Recovered/Resolved]

NARRATIVE: CASE EVENT DATE: 20120821
